FAERS Safety Report 9737002 (Version 3)
Quarter: 2015Q3

REPORT INFORMATION
  Report Type: Spontaneous
  Country: US (occurrence: US)
  Receive Date: 20131206
  Receipt Date: 20150804
  Transmission Date: 20151125
  Serious: Yes (Other)
  Sender: FDA-Public Use
  Company Number: US-GILEAD-2009-0023125

PATIENT
  Age: 59 Year
  Sex: Female

DRUGS (15)
  1. REVATIO [Concomitant]
     Active Substance: SILDENAFIL CITRATE
  2. ALBUTEROL. [Concomitant]
     Active Substance: ALBUTEROL
  3. LANTUS [Concomitant]
     Active Substance: INSULIN GLARGINE
  4. HYDROCHLOROTHIAZIDE. [Concomitant]
     Active Substance: HYDROCHLOROTHIAZIDE
  5. METOLAZONE. [Concomitant]
     Active Substance: METOLAZONE
  6. LETAIRIS [Suspect]
     Active Substance: AMBRISENTAN
     Indication: PULMONARY ARTERIAL HYPERTENSION
     Route: 048
     Dates: start: 20090615, end: 20090626
  7. DARVOCET [Concomitant]
     Active Substance: ACETAMINOPHEN\PROPOXYPHENE HYDROCHLORIDE
  8. SYMBICORT [Concomitant]
     Active Substance: BUDESONIDE\FORMOTEROL FUMARATE DIHYDRATE
  9. JANUVIA [Concomitant]
     Active Substance: SITAGLIPTIN PHOSPHATE
  10. RELAFEN [Concomitant]
     Active Substance: NABUMETONE
  11. LISINOPRIL AND HYDROCHLOROTHIAZIDE [Concomitant]
     Active Substance: HYDROCHLOROTHIAZIDE\LISINOPRIL
  12. LASIX [Concomitant]
     Active Substance: FUROSEMIDE
  13. SINGULAIR [Concomitant]
     Active Substance: MONTELUKAST SODIUM
  14. AMARYL [Concomitant]
     Active Substance: GLIMEPIRIDE
  15. NASONEX [Concomitant]
     Active Substance: MOMETASONE FUROATE

REACTIONS (1)
  - Oedema [Recovering/Resolving]

NARRATIVE: CASE EVENT DATE: 20090627
